FAERS Safety Report 17032276 (Version 1)
Quarter: 2019Q4

REPORT INFORMATION
  Report Type: Spontaneous
  Country: US (occurrence: US)
  Receive Date: 20191014
  Receipt Date: 20191014
  Transmission Date: 20200122
  Serious: No
  Sender: FDA-Public Use
  Company Number: None

PATIENT
  Age: 63 Year
  Sex: Male

DRUGS (1)
  1. SUTENT [Suspect]
     Active Substance: SUNITINIB MALATE
     Indication: RENAL CANCER
     Route: 048
     Dates: start: 20190831

REACTIONS (5)
  - Yellow skin [None]
  - Periorbital swelling [None]
  - Ocular hyperaemia [None]
  - Ocular icterus [None]
  - Hepatic enzyme increased [None]

NARRATIVE: CASE EVENT DATE: 20190926
